FAERS Safety Report 7431012-1 (Version None)
Quarter: 2011Q2

REPORT INFORMATION
  Report Type: 
  Country: None (occurrence: None)
  Receive Date: 20110421
  Receipt Date: 20110415
  Transmission Date: 20111010
  Serious: Yes (Hospitalization, Other)
  Sender: FDA-Public Use
  Company Number: US-BAYER-2011-033520

PATIENT
  Age: 59 Year
  Sex: Female

DRUGS (1)
  1. AVELOX [Suspect]
     Dosage: UNK
     Route: 042
     Dates: start: 20110408, end: 20110408

REACTIONS (2)
  - ANAPHYLACTIC REACTION [None]
  - ACUTE RESPIRATORY FAILURE [None]
